FAERS Safety Report 20187442 (Version 1)
Quarter: 2021Q4

REPORT INFORMATION
  Report Type: Spontaneous
  Country: CN (occurrence: CN)
  Receive Date: 20211215
  Receipt Date: 20211215
  Transmission Date: 20220303
  Serious: Yes (Hospitalization, Disabling, Other)
  Sender: FDA-Public Use
  Company Number: CN-LUPIN PHARMACEUTICALS INC.-2021-24725

PATIENT
  Age: 64 Year
  Sex: Male

DRUGS (4)
  1. CALCIUM [Suspect]
     Active Substance: CALCIUM
     Indication: Mineral supplementation
     Dosage: UNK
     Route: 048
  2. SODIUM THIOSULFATE [Concomitant]
     Active Substance: SODIUM THIOSULFATE
     Indication: Calciphylaxis
     Dosage: 5 GRAM, QD STARTING DOSE
     Route: 042
  3. SODIUM THIOSULFATE [Concomitant]
     Active Substance: SODIUM THIOSULFATE
     Dosage: 10 GRAM, QD MAINTENANCE DOSE
     Route: 042
  4. CALCITRIOL [Concomitant]
     Active Substance: CALCITRIOL
     Indication: Calciphylaxis
     Dosage: UNK
     Route: 048

REACTIONS (6)
  - Calciphylaxis [Recovering/Resolving]
  - Gangrene [Recovering/Resolving]
  - Skin necrosis [Recovering/Resolving]
  - Dry gangrene [Recovering/Resolving]
  - Insomnia [Recovering/Resolving]
  - Impaired quality of life [Recovering/Resolving]

NARRATIVE: CASE EVENT DATE: 20150101
